FAERS Safety Report 24041570 (Version 1)
Quarter: 2024Q3

REPORT INFORMATION
  Report Type: Report from Study
  Country: US (occurrence: US)
  Receive Date: 20240702
  Receipt Date: 20240702
  Transmission Date: 20241017
  Serious: No
  Sender: ALEXION PHARMACEUTICALS
  Company Number: US-ALXN-A202312653

PATIENT
  Age: 36 Year
  Sex: Female

DRUGS (1)
  1. STRENSIQ [Suspect]
     Active Substance: ASFOTASE ALFA
     Indication: Hypophosphatasia
     Dosage: 190 MILLIGRAM, TIW
     Route: 058
     Dates: start: 201703, end: 20240412

REACTIONS (11)
  - Illness [Recovering/Resolving]
  - Pain [Not Recovered/Not Resolved]
  - Arthritis [Unknown]
  - Weight increased [Unknown]
  - Arthralgia [Unknown]
  - Fatigue [Unknown]
  - Blood glucose increased [Unknown]
  - Blood alkaline phosphatase decreased [Unknown]
  - Alanine aminotransferase increased [Unknown]
  - Vitamin D decreased [Unknown]
  - Obesity [Unknown]

NARRATIVE: CASE EVENT DATE: 20230925
